FAERS Safety Report 7355468-8 (Version None)
Quarter: 2011Q1

REPORT INFORMATION
  Report Type: 
  Country: None (occurrence: None)
  Receive Date: 20110316
  Receipt Date: 20110304
  Transmission Date: 20110831
  Serious: Yes (Death, Other)
  Sender: FDA-Public Use
  Company Number: PT-ELI_LILLY_AND_COMPANY-PT201103001843

PATIENT
  Sex: Female
  Weight: 50 kg

DRUGS (17)
  1. LORAZEPAM [Concomitant]
     Dosage: 2.5 MG, UNKNOWN
     Route: 065
     Dates: start: 20110126
  2. AMINOCAPROIC ACID [Concomitant]
     Dosage: UNK, UNKNOWN
     Route: 065
     Dates: start: 20110117
  3. AMIODARONE HCL [Concomitant]
     Dosage: 20 MG, UNK
     Dates: start: 20110117
  4. FOLIC ACID [Concomitant]
     Dosage: 5 MG, UNKNOWN
     Route: 065
     Dates: start: 20110127
  5. GABAPENTIN [Concomitant]
     Dosage: 1200 MG, UNKNOWN
     Route: 065
     Dates: start: 20110117
  6. TENOXICAM [Concomitant]
     Dosage: 20 MG, UNKNOWN
     Route: 065
     Dates: start: 20110118
  7. LOPERAMIDE [Concomitant]
     Dosage: UNK, 2/D
     Route: 065
     Dates: start: 20110131, end: 20110201
  8. AMITRIPTYLINE [Concomitant]
     Dosage: 25 MG, UNKNOWN
     Route: 065
     Dates: start: 20110118
  9. ESOMEPRAZOL /01479301/ [Concomitant]
     Dosage: 20 MG, UNKNOWN
     Route: 065
     Dates: start: 20110118
  10. MORPHINE [Concomitant]
     Dosage: UNK, UNKNOWN
     Route: 065
     Dates: start: 20110118
  11. PARACETAMOL [Concomitant]
     Dosage: 1 G, UNKNOWN
     Route: 065
     Dates: start: 20110126
  12. CISPLATIN [Concomitant]
     Indication: LUNG ADENOCARCINOMA STAGE IV
     Dosage: UNK, UNKNOWN
     Route: 065
  13. ENOXAPARIN [Concomitant]
     Dosage: 120 MG, UNKNOWN
     Route: 065
     Dates: start: 20110117
  14. BETAMETHASONE [Concomitant]
     Dosage: 1 %, UNKNOWN
     Route: 065
     Dates: start: 20110117
  15. IPRATROPIUM BROMIDE [Concomitant]
     Dosage: UNK, UNKNOWN
     Route: 065
     Dates: start: 20110127
  16. ALIMTA [Suspect]
     Indication: LUNG CARCINOMA CELL TYPE UNSPECIFIED STAGE IV
     Dosage: 750 MG, DAILY (1/D)
     Route: 042
     Dates: start: 20110202, end: 20110202
  17. DEXAMETHASONE [Concomitant]
     Dosage: 8 MG, UNKNOWN
     Route: 065
     Dates: start: 20110131

REACTIONS (4)
  - DEATH [None]
  - DERMATITIS [None]
  - SEPTIC SHOCK [None]
  - PANCYTOPENIA [None]
